FAERS Safety Report 5601118-8 (Version None)
Quarter: 2008Q1

REPORT INFORMATION
  Report Type: 
  Country: None (occurrence: None)
  Receive Date: 20080108
  Receipt Date: 20070403
  Transmission Date: 20080703
  Serious: Yes (Hospitalization)
  Sender: FDA-Public Use
  Company Number: PERC20070014

PATIENT
  Sex: Male

DRUGS (6)
  1. PERCOCET [Suspect]
     Indication: PAIN
     Dosage: PER ORAL
     Route: 048
  2. PAXIL [Suspect]
     Dosage: PER ORAL
     Route: 048
  3. TRILEPTAL [Suspect]
     Dosage: PER ORAL
     Route: 048
  4. CODEINE SUL TAB [Suspect]
     Indication: PAIN
     Dosage: PER ORAL
     Route: 048
  5. LUNESTA [Concomitant]
  6. CYMBALTA [Concomitant]

REACTIONS (2)
  - MULTIPLE DRUG OVERDOSE [None]
  - SUICIDE ATTEMPT [None]
